FAERS Safety Report 5986482-2 (Version None)
Quarter: 2008Q4

REPORT INFORMATION
  Report Type: 
  Country: None (occurrence: None)
  Receive Date: 20081203
  Receipt Date: 20081111
  Transmission Date: 20090506
  Serious: No
  Sender: FDA-Public Use
  Company Number: 2008-186654-NL

PATIENT
  Sex: Male

DRUGS (2)
  1. MIRTAZAPINE [Suspect]
     Dosage: DF
  2. METHADONE HCL [Suspect]
     Dosage: DF

REACTIONS (1)
  - ELECTROCARDIOGRAM QT PROLONGED [None]
